FAERS Safety Report 10892225 (Version 2)
Quarter: 2015Q2

REPORT INFORMATION
  Report Type: Spontaneous
  Country: US (occurrence: US)
  Receive Date: 20150306
  Receipt Date: 20150603
  Transmission Date: 20150821
  Serious: Yes (Other)
  Sender: FDA-Public Use
  Company Number: US-PFIZER INC-2015080710

PATIENT
  Sex: Female

DRUGS (1)
  1. SKELAXIN [Suspect]
     Active Substance: METAXALONE
     Dosage: UNK

REACTIONS (8)
  - Neuropathy peripheral [Unknown]
  - Limb crushing injury [Unknown]
  - Memory impairment [Unknown]
  - Movement disorder [Unknown]
  - Dysgraphia [Unknown]
  - Anxiety [Unknown]
  - Injury [Unknown]
  - Fibromyalgia [Unknown]
